FAERS Safety Report 6439940-0 (Version None)
Quarter: 2009Q4

REPORT INFORMATION
  Report Type: 
  Country: None (occurrence: None)
  Receive Date: 20091113
  Receipt Date: 20091102
  Transmission Date: 20100525
  Serious: Yes (Other)
  Sender: FDA-Public Use
  Company Number: US-JNJFOC-20091103242

PATIENT
  Age: 42 Year
  Sex: Male
  Weight: 91.17 kg

DRUGS (4)
  1. FLEXERIL [Suspect]
     Indication: BACK PAIN
  2. ELAVIL [Interacting]
     Indication: DEPRESSION
  3. DARVON [Interacting]
     Indication: HYPERTENSION
  4. CLONIDINE [Interacting]
     Indication: BACK PAIN

REACTIONS (7)
  - ANXIETY [None]
  - CONFUSIONAL STATE [None]
  - DELIRIUM [None]
  - DRUG INTERACTION [None]
  - HALLUCINATION [None]
  - INCORRECT DOSE ADMINISTERED [None]
  - MENTAL DISORDER [None]
